FAERS Safety Report 9276193 (Version 1)
Quarter: 2012Q4

REPORT INFORMATION
  Report Type: Spontaneous
  Country: IE (occurrence: None)
  Receive Date: 20121109
  Receipt Date: 20121109
  Transmission Date: 20130627
  Serious: Yes (Hospitalization)
  Sender: FDA-Public Use
  Company Number: 2012S1000669

PATIENT
  Age: 67 Year
  Sex: Male

DRUGS (6)
  1. CUBICIN (DAPTOMYCIN) [Suspect]
     Indication: OSTEOMYELITIS
     Route: 042
     Dates: start: 201206, end: 20120712
  2. MEROPENEM [Concomitant]
  3. AMLODIPINE [Concomitant]
  4. ASPIRIN [Concomitant]
  5. LUMIGAN [Concomitant]
  6. COSOPT [Concomitant]

REACTIONS (4)
  - Off label use [None]
  - Pneumonia [None]
  - Renal failure acute [None]
  - Eosinophil count increased [None]
